FAERS Safety Report 9438419 (Version 1)
Quarter: 2013Q3

REPORT INFORMATION
  Report Type: Spontaneous
  Country: US (occurrence: None)
  Receive Date: 20130802
  Receipt Date: 20130802
  Transmission Date: 20140515
  Serious: Yes (Life-Threatening, Hospitalization)
  Sender: FDA-Public Use
  Company Number: None

PATIENT
  Age: 64 Year
  Sex: Female
  Weight: 59.42 kg

DRUGS (1)
  1. ENBREL [Suspect]
     Dosage: 50MG WEEKLY SUBCUTANEOUS?ABOUT 10 YEARS
     Route: 058

REACTIONS (1)
  - Autoimmune haemolytic anaemia [None]
